FAERS Safety Report 8449018-2 (Version None)
Quarter: 2012Q2

REPORT INFORMATION
  Report Type: 
  Country: None (occurrence: None)
  Receive Date: 20120619
  Receipt Date: 20120611
  Transmission Date: 20120825
  Serious: Yes (Hospitalization)
  Sender: FDA-Public Use
  Company Number: US-ABBOTT-12P-163-0944794-00

PATIENT
  Sex: Female
  Weight: 61.29 kg

DRUGS (7)
  1. HUMIRA [Suspect]
     Indication: PSORIASIS
     Route: 058
     Dates: start: 20120301, end: 20120401
  2. NEURONTIN [Concomitant]
     Indication: CONVULSION
     Dates: start: 20010101
  3. ZOLOFT [Concomitant]
     Indication: DEPRESSION
     Dates: start: 20100101
  4. VANCOMYCIN [Suspect]
     Indication: CELLULITIS
     Route: 042
     Dates: start: 20120401
  5. KLONOPIN [Concomitant]
     Indication: ANXIETY
     Dates: start: 20100101
  6. TOPROL-XL [Concomitant]
     Indication: HEART RATE IRREGULAR
     Dates: start: 20030101
  7. RESTORIL [Concomitant]
     Indication: INSOMNIA

REACTIONS (6)
  - OEDEMA PERIPHERAL [None]
  - FACE OEDEMA [None]
  - ERYTHEMA [None]
  - SWELLING FACE [None]
  - CELLULITIS [None]
  - SKIN EXFOLIATION [None]
